FAERS Safety Report 8503375-7 (Version None)
Quarter: 2012Q3

REPORT INFORMATION
  Report Type: 
  Country: None (occurrence: None)
  Receive Date: 20120711
  Receipt Date: 20120706
  Transmission Date: 20120928
  Serious: No
  Sender: FDA-Public Use
  Company Number: US-PFIZER INC-2012127236

PATIENT
  Sex: Female
  Weight: 50 kg

DRUGS (6)
  1. FISH OIL [Concomitant]
     Dosage: UNK
  2. CYCLOBENZAPRINE [Concomitant]
     Indication: SCOLIOSIS
     Dosage: 10 MG, UNK
  3. NEURONTIN [Suspect]
     Indication: TREMOR
     Dosage: 900 MG, 3X/DAY
     Route: 048
  4. AUGMENTIN '125' [Concomitant]
     Dosage: UNK
  5. MULTI-VITAMINS [Concomitant]
     Dosage: UNK
  6. CYCLOBENZAPRINE [Concomitant]
     Indication: MUSCLE SPASMS

REACTIONS (1)
  - BODY HEIGHT DECREASED [None]
